FAERS Safety Report 13361391 (Version 1)
Quarter: 2017Q1

REPORT INFORMATION
  Report Type: Report from Study
  Country: None (occurrence: US)
  Receive Date: 20170323
  Receipt Date: 20170323
  Transmission Date: 20170429
  Serious: Yes (Other)
  Sender: FDA-Public Use
  Company Number: US-ABBVIE-16K-163-1787024-00

PATIENT
  Sex: Female

DRUGS (4)
  1. HUMIRA [Suspect]
     Active Substance: ADALIMUMAB
     Route: 058
     Dates: start: 20170108
  2. HUMIRA [Suspect]
     Active Substance: ADALIMUMAB
     Indication: PSORIASIS
     Route: 058
     Dates: end: 20161204
  3. MORPHINE [Concomitant]
     Active Substance: MORPHINE
     Indication: PRODUCT USED FOR UNKNOWN INDICATION
  4. HYDROCODONE [Concomitant]
     Active Substance: HYDROCODONE
     Indication: PRODUCT USED FOR UNKNOWN INDICATION

REACTIONS (23)
  - Feeling abnormal [Unknown]
  - Peripheral pulse decreased [Unknown]
  - Post-traumatic pain [Unknown]
  - Anxiety [Unknown]
  - Weight decreased [Unknown]
  - Sinusitis [Unknown]
  - Gastric ulcer [Unknown]
  - Fall [Unknown]
  - Diabetes mellitus [Unknown]
  - Cholelithiasis [Unknown]
  - Gastrointestinal obstruction [Unknown]
  - Abdominal pain upper [Not Recovered/Not Resolved]
  - Urinary tract infection [Not Recovered/Not Resolved]
  - Hypophagia [Unknown]
  - Pruritus [Unknown]
  - Fungal infection [Unknown]
  - Ear infection [Unknown]
  - Wound haemorrhage [Unknown]
  - Scratch [Unknown]
  - Skin burning sensation [Unknown]
  - Renal disorder [Unknown]
  - Psoriasis [Unknown]
  - Kidney infection [Unknown]

NARRATIVE: CASE EVENT DATE: 2016
